FAERS Safety Report 5129549-3 (Version None)
Quarter: 2006Q4

REPORT INFORMATION
  Report Type: 
  Country: None (occurrence: None)
  Receive Date: 20061018
  Receipt Date: 20060907
  Transmission Date: 20070319
  Serious: Yes (Hospitalization)
  Sender: FDA-Public Use
  Company Number: US-BAYER-200615395BWH

PATIENT
  Age: 20 Year
  Sex: Female
  Weight: 54 kg

DRUGS (2)
  1. AVELOX [Suspect]
     Indication: EAR INFECTION
     Dosage: UNIT DOSE: 400 MG
     Route: 048
     Dates: start: 20060905, end: 20060906
  2. MIRAPEX [Concomitant]
     Dosage: TOTAL DAILY DOSE: 0.75 MG
     Route: 048
     Dates: start: 20060201

REACTIONS (12)
  - ANAPHYLACTIC REACTION [None]
  - ARTHRALGIA [None]
  - BALANCE DISORDER [None]
  - DYSPNOEA [None]
  - HEADACHE [None]
  - PHARYNGEAL OEDEMA [None]
  - RASH [None]
  - RESTLESSNESS [None]
  - SLEEP DISORDER [None]
  - SLEEP TERROR [None]
  - SWOLLEN TONGUE [None]
  - URTICARIA [None]
